FAERS Safety Report 4362505-1 (Version None)
Quarter: 2004Q2

REPORT INFORMATION
  Report Type: 
  Country: None (occurrence: None)
  Receive Date: 20040518
  Receipt Date: 20040507
  Transmission Date: 20050107
  Serious: Yes (Death)
  Sender: FDA-Public Use
  Company Number: US-JNJFOC-20040501553

PATIENT
  Age: 79 Year
  Sex: Female

DRUGS (13)
  1. INFLIXIMAB (INFLIXIMAB, RECOMBINANT) LYOPHILIZED POWDER [Suspect]
     Indication: RHEUMATOID ARTHRITIS
     Dosage: INTRAVENOUS
     Route: 042
     Dates: start: 20010301
  2. NORVASC [Concomitant]
  3. BENECAR (PROBENECID) [Concomitant]
  4. ADVAIR (SERETIDE MITE) [Concomitant]
  5. ATROVENT [Concomitant]
  6. ALBUTEROL [Concomitant]
  7. ALLEGRA [Concomitant]
  8. FOSAMAX [Concomitant]
  9. PLAQUERIL (HYDROXYCHLOROQUINE PHOSPHATE) [Concomitant]
  10. THEOPHYLINE (THEOPHYLLINE) [Concomitant]
  11. INDURAL (PROPRANOLOL HYDROCHLORIDE) [Concomitant]
  12. TYLENOL [Concomitant]
  13. MULTIVITAMIN [Concomitant]

REACTIONS (1)
  - DEATH [None]
